FAERS Safety Report 9411388 (Version 1)
Quarter: 2013Q3

REPORT INFORMATION
  Report Type: Spontaneous
  Country: GB (occurrence: GB)
  Receive Date: 20130722
  Receipt Date: 20130722
  Transmission Date: 20140515
  Serious: Yes (Life-Threatening, Hospitalization, Disabling)
  Sender: FDA-Public Use
  Company Number: PHHY2013GB076456

PATIENT
  Age: 91 Year
  Sex: Female
  Weight: 57 kg

DRUGS (16)
  1. TRAMADOL [Suspect]
     Indication: PROCEDURAL PAIN
     Dosage: 50-100 MG FOUR TIMES DAILY
     Route: 048
     Dates: start: 20130615, end: 20130618
  2. CLEXANE [Concomitant]
     Indication: THROMBOSIS PROPHYLAXIS
     Dates: start: 20130613, end: 20130620
  3. PARACETAMOL [Concomitant]
     Indication: PROCEDURAL PAIN
  4. RANITIDINE [Concomitant]
  5. BISOPROLOL [Concomitant]
  6. LOSARTAN [Concomitant]
  7. LERCANIDIPINE [Concomitant]
  8. VITAMIN D [Concomitant]
  9. LACTULOSE [Concomitant]
  10. TRANEXAMIC ACID [Concomitant]
  11. WARFARIN [Concomitant]
  12. FLUCLOXACILLIN [Concomitant]
  13. TEMAZEPAM [Concomitant]
  14. MORPHINE [Concomitant]
  15. CYCLIZINE [Concomitant]
  16. ONDANSETRON [Concomitant]

REACTIONS (4)
  - Hyponatraemia [Recovered/Resolved]
  - Inappropriate antidiuretic hormone secretion [Recovered/Resolved]
  - Disorientation [Unknown]
  - Confusional state [Unknown]
